FAERS Safety Report 12441337 (Version 1)
Quarter: 2016Q2

REPORT INFORMATION
  Report Type: Spontaneous
  Country: US (occurrence: None)
  Receive Date: 20160606
  Receipt Date: 20160606
  Transmission Date: 20160815
  Serious: No
  Sender: FDA-Public Use
  Company Number: None

PATIENT
  Age: 44 Year
  Sex: Male
  Weight: 102.97 kg

DRUGS (1)
  1. DIAZEPAM, 5MG GENERIC [Suspect]
     Active Substance: DIAZEPAM
     Indication: MYOFASCIAL PAIN SYNDROME
     Route: 048

REACTIONS (1)
  - Headache [None]

NARRATIVE: CASE EVENT DATE: 20140910
